FAERS Safety Report 10865812 (Version 1)
Quarter: 2015Q1

REPORT INFORMATION
  Report Type: Report from Study
  Country: US (occurrence: US)
  Receive Date: 20150224
  Receipt Date: 20150224
  Transmission Date: 20150721
  Serious: Yes (Death, Other)
  Sender: FDA-Public Use
  Company Number: US-ASTELLAS-2015US005625

PATIENT
  Age: 77 Year
  Sex: Male

DRUGS (2)
  1. ERLOTINIB [Suspect]
     Active Substance: ERLOTINIB
     Indication: LYMPHOMA
  2. ERLOTINIB [Suspect]
     Active Substance: ERLOTINIB
     Indication: LUNG NEOPLASM MALIGNANT
     Route: 048
     Dates: start: 20141224, end: 20150205

REACTIONS (3)
  - Chronic obstructive pulmonary disease [Fatal]
  - Malignant neoplasm progression [Fatal]
  - Respiratory failure [Fatal]

NARRATIVE: CASE EVENT DATE: 20150206
